FAERS Safety Report 9293858 (Version 3)
Quarter: 2013Q2

REPORT INFORMATION
  Report Type: Spontaneous
  Country: JP (occurrence: JP)
  Receive Date: 20130516
  Receipt Date: 20130619
  Transmission Date: 20140414
  Serious: Yes (Other)
  Sender: FDA-Public Use
  Company Number: JP-PFIZER INC-2013148765

PATIENT
  Age: 72 Year
  Sex: Female
  Weight: 65.9 kg

DRUGS (7)
  1. NORVASC OD [Suspect]
     Indication: HYPERTENSION
     Dosage: 10 MG, DAILY
     Route: 048
     Dates: start: 20130422, end: 20130427
  2. NIFEDIPINE CR [Concomitant]
     Indication: HYPERTENSION
     Dosage: 20 MG, 1X/DAY
     Route: 048
     Dates: start: 20110421, end: 20130421
  3. NIFEDIPINE CR [Concomitant]
     Dosage: UNK
     Dates: start: 20130427
  4. IMIDAPRIL [Concomitant]
     Indication: HYPERTENSION
     Dosage: 10 MG, 1X/DAY
     Route: 048
     Dates: start: 20110421
  5. DIOVAN [Concomitant]
     Indication: HYPERTENSION
     Dosage: 160 MG, 1X/DAY
     Route: 048
     Dates: start: 20110421
  6. PANALDINE [Concomitant]
     Indication: CEREBRAL INFARCTION
     Dosage: 200 MG, 1X/DAY
     Route: 048
     Dates: start: 20110421
  7. CRESTOR [Concomitant]
     Indication: HYPERLIPIDAEMIA
     Dosage: 10 MG, 1X/DAY
     Route: 048
     Dates: start: 20110421

REACTIONS (1)
  - Rhabdomyolysis [Not Recovered/Not Resolved]
